FAERS Safety Report 9597030 (Version 1)
Quarter: 2013Q4

REPORT INFORMATION
  Report Type: Spontaneous
  Country: US (occurrence: US)
  Receive Date: 20131004
  Receipt Date: 20131004
  Transmission Date: 20140711
  Serious: Yes (Hospitalization)
  Sender: FDA-Public Use
  Company Number: US-B.I. PHARMACEUTICALS,INC./RIDGEFIELD-2013-BI-30722BP

PATIENT
  Age: 77 Year
  Sex: Female
  Weight: 64 kg

DRUGS (7)
  1. SPIRIVA [Suspect]
     Indication: CHRONIC OBSTRUCTIVE PULMONARY DISEASE
     Dosage: 18 MCG
     Route: 055
     Dates: start: 2004
  2. ARICEPT [Concomitant]
     Indication: DEMENTIA ALZHEIMER^S TYPE
     Dosage: 10 MG
     Route: 048
     Dates: start: 201208
  3. COUMADIN [Concomitant]
     Indication: ATRIAL FIBRILLATION
     Dates: start: 2003
  4. CARDIZEM [Concomitant]
     Indication: HYPERTENSION
     Dosage: 120 MG
     Route: 048
     Dates: start: 2008
  5. TRAMADOL [Concomitant]
     Indication: BACK PAIN
     Dosage: 60 MG
     Route: 048
     Dates: start: 2013
  6. COZAAR [Concomitant]
     Indication: HYPERTENSION
     Dosage: 75 MG
     Route: 048
  7. NEURONTIN [Concomitant]
     Indication: BACK PAIN
     Dosage: 100 MG
     Route: 048
     Dates: start: 2013

REACTIONS (4)
  - Rectal haemorrhage [Recovered/Resolved]
  - Surgery [Recovered/Resolved]
  - Hypertension [Recovered/Resolved]
  - Balance disorder [Not Recovered/Not Resolved]
